FAERS Safety Report 6343598-9 (Version None)
Quarter: 2009Q3

REPORT INFORMATION
  Report Type: 
  Country: None (occurrence: None)
  Receive Date: 20090908
  Receipt Date: 20090805
  Transmission Date: 20100115
  Serious: No
  Sender: FDA-Public Use
  Company Number: US-BAYER-200930180NA

PATIENT
  Age: 62 Year
  Sex: Female
  Weight: 74 kg

DRUGS (4)
  1. ULTRAVIST PHARMACY BULK PACKAGE 370 [Suspect]
     Indication: PANCREATIC CARCINOMA
     Dosage: TOTAL DAILY DOSE: 120 ML  UNIT DOSE: 500 ML
     Route: 042
     Dates: start: 20090805, end: 20090805
  2. ULTRAVIST PHARMACY BULK PACKAGE 370 [Suspect]
     Route: 048
     Dates: start: 20090805, end: 20090805
  3. SYNTHROID [Concomitant]
     Indication: THYROID CANCER
  4. COMPOUNDED ESTROGEN AND PROGESTERONE [Concomitant]
     Indication: DRUG USE FOR UNKNOWN INDICATION

REACTIONS (1)
  - PRURITUS [None]
